FAERS Safety Report 24431612 (Version 2)
Quarter: 2025Q2

REPORT INFORMATION
  Report Type: Spontaneous
  Country: MX (occurrence: MX)
  Receive Date: 20241014
  Receipt Date: 20250626
  Transmission Date: 20250716
  Serious: Yes (Hospitalization, Other)
  Sender: NOVARTIS
  Company Number: MX-002147023-NVSC2024MX200035

PATIENT
  Sex: Female

DRUGS (1)
  1. GLIVEC [Suspect]
     Active Substance: IMATINIB MESYLATE
     Indication: Chronic myeloid leukaemia
     Route: 065

REACTIONS (6)
  - Radius fracture [Unknown]
  - Rib fracture [Unknown]
  - Hypoacusis [Unknown]
  - Emotional disorder [Unknown]
  - Back pain [Unknown]
  - Memory impairment [Unknown]
